FAERS Safety Report 9250307 (Version 1)
Quarter: 2013Q1

REPORT INFORMATION
  Report Type: Spontaneous
  Country: US (occurrence: None)
  Receive Date: 20130305
  Receipt Date: 20130305
  Transmission Date: 20140127
  Serious: Yes (Other)
  Sender: FDA-Public Use
  Company Number: 163-21880-12061487

PATIENT
  Age: 68 Year
  Sex: Female

DRUGS (4)
  1. REVLIMID [Suspect]
     Indication: PLASMA CELL MYELOMA
     Dosage: 25 MG, 14 IN 21 D, PO
     Route: 048
     Dates: start: 20120522
  2. VELCADE [Concomitant]
     Dosage: 2.4 MG, UNK
  3. DECADRON [Concomitant]
     Dosage: 40 MG, UNK
  4. ZOMETA (ZOLEDRONIC ACID) (UNKNOWN) [Concomitant]
     Dosage: 4 MG, UNK

REACTIONS (2)
  - Fungal skin infection [None]
  - Rash [None]
